FAERS Safety Report 11800597 (Version 1)
Quarter: 2015Q4

REPORT INFORMATION
  Report Type: Spontaneous
  Country: US (occurrence: US)
  Receive Date: 20151204
  Receipt Date: 20151204
  Transmission Date: 20160305
  Serious: Yes (Other)
  Sender: FDA-Public Use
  Company Number: US-AMGEN-USASP2015128197

PATIENT
  Age: 68 Year
  Sex: Female

DRUGS (11)
  1. ENBREL [Suspect]
     Active Substance: ETANERCEPT
     Indication: RHEUMATOID ARTHRITIS
     Dosage: 50 MG, QWK
     Route: 058
  2. MAGNESIUM [Concomitant]
     Active Substance: MAGNESIUM
  3. CALCIUM [Concomitant]
     Active Substance: CALCIUM
  4. METHOTREXATE [Concomitant]
     Active Substance: METHOTREXATE
  5. ZINC [Concomitant]
     Active Substance: ZINC\ZINC CHLORIDE
  6. DULOXETINE. [Concomitant]
     Active Substance: DULOXETINE
  7. VITAMIN D                          /00107901/ [Concomitant]
     Active Substance: ERGOCALCIFEROL
  8. VITAMIN B12 [Concomitant]
     Active Substance: CYANOCOBALAMIN
  9. CELEBREX [Concomitant]
     Active Substance: CELECOXIB
     Dosage: UNK
  10. VERAPAMIL [Concomitant]
     Active Substance: VERAPAMIL HYDROCHLORIDE
  11. FOLIC ACID. [Concomitant]
     Active Substance: FOLIC ACID

REACTIONS (2)
  - Headache [Not Recovered/Not Resolved]
  - Knee arthroplasty [Unknown]

NARRATIVE: CASE EVENT DATE: 20150914
